FAERS Safety Report 6455345-0 (Version None)
Quarter: 2009Q4

REPORT INFORMATION
  Report Type: 
  Country: None (occurrence: None)
  Receive Date: 20091125
  Receipt Date: 20091021
  Transmission Date: 20100525
  Serious: No
  Sender: FDA-Public Use
  Company Number: US-ABBOTT-09P-163-0604405-00

PATIENT
  Sex: Male
  Weight: 98.972 kg

DRUGS (1)
  1. SIMCOR [Suspect]
     Indication: BLOOD CHOLESTEROL INCREASED
     Dosage: 1 - 500/20 MG TAB DAILY AT BEDTIME
     Dates: start: 20091016, end: 20091019

REACTIONS (5)
  - BLISTER [None]
  - FLUSHING [None]
  - GENERALISED ERYTHEMA [None]
  - PAIN OF SKIN [None]
  - SKIN TIGHTNESS [None]
